FAERS Safety Report 25878775 (Version 3)
Quarter: 2025Q4

REPORT INFORMATION
  Report Type: Report from Study
  Country: EU (occurrence: None)
  Receive Date: 20251003
  Receipt Date: 20251229
  Transmission Date: 20260118
  Serious: Yes (Hospitalization, Other)
  Sender: UCB
  Company Number: EU-UCBSA-2025018203

PATIENT
  Age: 49 Year
  Weight: 66.6 kg

DRUGS (6)
  1. BIMEKIZUMAB [Suspect]
     Active Substance: BIMEKIZUMAB
     Indication: Axial spondyloarthritis
     Dosage: 160 MILLIGRAM, MONTHLY (QM)
  2. KARDEGIC [Concomitant]
     Active Substance: ASPIRIN DL-LYSINE
     Indication: Skin lesion
     Dosage: 75 MILLIGRAM, ONCE DAILY (QD) FOR 1 YEAR
  3. TICAGRELOR [Concomitant]
     Active Substance: TICAGRELOR
     Indication: Skin lesion
     Dosage: 90 MILLIGRAM, 2X/DAY (BID) FOR 1 YEAR
  4. TICAGRELOR [Concomitant]
     Active Substance: TICAGRELOR
     Indication: Skin lesion
     Dosage: 90 MILLIGRAM, 2X/DAY (BID)
  5. BISOPROLOL [Concomitant]
     Active Substance: BISOPROLOL
     Indication: Stent placement
     Dosage: 2.5 MILLIGRAM, ONCE DAILY (QD)
  6. ATORVASTATIN [Concomitant]
     Active Substance: ATORVASTATIN
     Indication: Coronary artery occlusion
     Dosage: 80 MILLIGRAM, ONCE DAILY (QD)

REACTIONS (5)
  - Coronary artery occlusion [Recovered/Resolved]
  - Abdominal pain [Recovered/Resolved]
  - Diarrhoea haemorrhagic [Not Recovered/Not Resolved]
  - Prurigo [Not Recovered/Not Resolved]
  - Weight increased [Recovered/Resolved]
